FAERS Safety Report 25103250 (Version 1)
Quarter: 2025Q1

REPORT INFORMATION
  Report Type: Spontaneous
  Country: AU (occurrence: AU)
  Receive Date: 20250321
  Receipt Date: 20250321
  Transmission Date: 20250409
  Serious: Yes (Other)
  Sender: LEO PHARM
  Company Number: AU-LEO Pharma-378517

PATIENT

DRUGS (1)
  1. ENSTILAR [Suspect]
     Active Substance: BETAMETHASONE DIPROPIONATE\CALCIPOTRIENE HYDRATE
     Indication: Product used for unknown indication

REACTIONS (4)
  - Glaucoma [Unknown]
  - Ocular discomfort [Unknown]
  - Blindness [Unknown]
  - Dyschromatopsia [Unknown]
